FAERS Safety Report 5200968-X (Version None)
Quarter: 2007Q1

REPORT INFORMATION
  Report Type: 
  Country: None (occurrence: None)
  Receive Date: 20070103
  Receipt Date: 20061218
  Transmission Date: 20070707
  Serious: Yes (Life-Threatening, Hospitalization)
  Sender: FDA-Public Use
  Company Number: DSA_29083_2006

PATIENT
  Age: 18 Year
  Sex: Male

DRUGS (6)
  1. TAVOR /00273201/ [Suspect]
     Dosage: 25 MG ONCE PO
     Route: 048
     Dates: start: 20061201, end: 20061201
  2. ASPIRIN [Suspect]
     Dosage: 4 TAB ONCE PO
     Route: 048
     Dates: start: 20061201, end: 20061201
  3. IBUPROFEN [Suspect]
     Dosage: 6000 MG ONCE PO
     Route: 048
     Dates: start: 20061201, end: 20061201
  4. PARACETAMOL [Suspect]
     Dosage: 15000 MG ONCE PO
     Route: 048
     Dates: start: 20061201, end: 20061201
  5. LOPERAMIDE HCL [Suspect]
     Dosage: DF ONCE PO
     Route: 048
     Dates: start: 20061201, end: 20061201
  6. BALDRIAN-DISPERT [Suspect]
     Dosage: DF ONCE PO
     Route: 048
     Dates: start: 20061201, end: 20061201

REACTIONS (3)
  - FATIGUE [None]
  - OVERDOSE [None]
  - SUICIDE ATTEMPT [None]
